FAERS Safety Report 5162088-2 (Version None)
Quarter: 2006Q4

REPORT INFORMATION
  Report Type: 
  Country: None (occurrence: None)
  Receive Date: 20061121
  Receipt Date: 20061117
  Transmission Date: 20070319
  Serious: Yes (Life-Threatening, Hospitalization)
  Sender: FDA-Public Use
  Company Number: PL-2006-035765

PATIENT
  Age: 52 Year
  Sex: Male

DRUGS (1)
  1. ULTRAVIST 300 [Suspect]
     Indication: COMPUTERISED TOMOGRAM
     Dosage: 80 ML, 1 DOSE, INTRAVENOUS
     Route: 042
     Dates: start: 20061114, end: 20061114

REACTIONS (3)
  - APNOEA [None]
  - BLOOD PRESSURE DECREASED [None]
  - CARDIAC ARREST [None]
